FAERS Safety Report 7301463 (Version 2)
Quarter: 2017Q3

REPORT INFORMATION
  Report Type: Report from Study
  Country: JP (occurrence: JP)
  Receive Date: 20100302
  Receipt Date: 20170706
  Transmission Date: 20171128
  Serious: Yes (Other)
  Sender: FDA-Public Use
  Company Number: JP-BRISTOL-MYERS SQUIBB COMPANY-14989347

PATIENT
  Age: 60 Year
  Sex: Male
  Weight: 42.9 kg

DRUGS (3)
  1. BUSULFAN. [Suspect]
     Active Substance: BUSULFAN
     Indication: PREMEDICATION
     Route: 065
  2. DASATINIB [Suspect]
     Active Substance: DASATINIB
     Indication: CHRONIC MYELOID LEUKAEMIA
     Dosage: 70 MG, UNK
     Route: 048
     Dates: start: 20090417
  3. FLUDARABINE [Suspect]
     Active Substance: FLUDARABINE PHOSPHATE
     Indication: PREMEDICATION
     Route: 065

REACTIONS (3)
  - Thrombotic microangiopathy [Unknown]
  - Histiocytosis haematophagic [Unknown]
  - Infection [Unknown]
